FAERS Safety Report 18615660 (Version 13)
Quarter: 2021Q2

REPORT INFORMATION
  Report Type: Report from Study
  Country: CN (occurrence: CN)
  Receive Date: 20201214
  Receipt Date: 20210624
  Transmission Date: 20210717
  Serious: Yes (Hospitalization)
  Sender: FDA-Public Use
  Company Number: NVSC2020CN325570

PATIENT
  Age: 57 Year
  Sex: Male
  Weight: 63.1 kg

DRUGS (47)
  1. CISPLATIN. [Suspect]
     Active Substance: CISPLATIN
     Indication: NON-HODGKIN^S LYMPHOMA
     Dosage: 135 MG, QD
     Route: 042
     Dates: start: 20201014
  2. SODIUM BICARBONATE. [Concomitant]
     Active Substance: SODIUM BICARBONATE
     Indication: PH URINE INCREASED
     Dosage: UNK
     Route: 065
     Dates: start: 20201127, end: 20201130
  3. LIDOCAINE HYDROCHLORIDE. [Concomitant]
     Active Substance: LIDOCAINE HYDROCHLORIDE
     Indication: ANAESTHESIA
     Dosage: UNK
     Route: 065
     Dates: start: 20201127, end: 20201127
  4. LEVOFLOXACIN. [Concomitant]
     Active Substance: LEVOFLOXACIN
     Indication: CONJUNCTIVITIS
     Dosage: UNK
     Route: 065
     Dates: start: 20201126, end: 20201128
  5. OXYCODONE AND ACETAMINOPHEN [Concomitant]
     Active Substance: ACETAMINOPHEN\OXYCODONE HYDROCHLORIDE
     Dosage: UNK
     Route: 065
     Dates: start: 20201212, end: 20201217
  6. ESOMEPRAZOLE MAGNESIUM. [Concomitant]
     Active Substance: ESOMEPRAZOLE MAGNESIUM
     Indication: PROPHYLAXIS
     Dosage: UNK
     Route: 065
     Dates: start: 20201210, end: 20201210
  7. DEXAMETHASONE. [Suspect]
     Active Substance: DEXAMETHASONE
     Indication: NON-HODGKIN^S LYMPHOMA
     Dosage: 40 MG, QD
     Route: 042
     Dates: start: 20201014
  8. ETOPOSIDE. [Suspect]
     Active Substance: ETOPOSIDE
     Indication: NON-HODGKIN^S LYMPHOMA
     Dosage: 0.429 G, QD
     Route: 042
     Dates: start: 20201105
  9. RECOMBINANT HUMAN GRANULOCYTE COLONY STIMULAT [Concomitant]
     Indication: WHITE BLOOD CELL COUNT DECREASED
     Dosage: UNK
     Route: 065
     Dates: start: 20201130, end: 20201201
  10. IMIPENEM AND CILASTATIN SODIUM [Concomitant]
     Active Substance: CILASTATIN SODIUM\IMIPENEM
     Indication: INFECTION PROPHYLAXIS
     Dosage: UNK
     Route: 065
     Dates: start: 20201209, end: 20201209
  11. DIPHENHYDRAMINE HCL [Concomitant]
     Active Substance: DIPHENHYDRAMINE HYDROCHLORIDE
     Dosage: UNK
     Route: 065
     Dates: start: 20201214, end: 20201214
  12. SPIRONOLACTONE. [Concomitant]
     Active Substance: SPIRONOLACTONE
     Indication: DIURETIC THERAPY
     Dosage: UNK
     Route: 065
     Dates: start: 20201214, end: 20201214
  13. FLUDARABINE [Concomitant]
     Active Substance: FLUDARABINE PHOSPHATE
     Indication: CHEMOTHERAPY
     Dosage: UNK
     Route: 065
     Dates: start: 20210128, end: 20210130
  14. IFOSFAMIDE. [Suspect]
     Active Substance: IFOSFAMIDE
     Indication: NON-HODGKIN^S LYMPHOMA
     Dosage: 7.15 G, CONT 24H
     Route: 041
     Dates: start: 20201106
  15. METHOTREXATE. [Concomitant]
     Active Substance: METHOTREXATE
     Indication: PROPHYLAXIS
     Dosage: UNK
     Route: 065
     Dates: start: 20201127, end: 20201127
  16. LACTULOSE. [Concomitant]
     Active Substance: LACTULOSE
     Dosage: UNK
     Route: 065
     Dates: start: 20201128, end: 20201201
  17. CYCLOPHOSPHAMIDE. [Concomitant]
     Active Substance: CYCLOPHOSPHAMIDE
     Indication: SALVAGE THERAPY
     Dosage: 7.15 G, Q24H
     Route: 065
     Dates: start: 20201106, end: 20201107
  18. GEMCITABINE. [Suspect]
     Active Substance: GEMCITABINE
     Indication: NON-HODGKIN^S LYMPHOMA
     Dosage: 1.8 G, ONCE/SINGLE
     Route: 042
     Dates: start: 20201014
  19. CARBOPLATIN. [Suspect]
     Active Substance: CARBOPLATIN
     Indication: NON-HODGKIN^S LYMPHOMA
     Dosage: 532 MG, ONCE/SINGLE
     Route: 042
     Dates: start: 20201106
  20. ESOMEPRAZOLE SODIUM. [Concomitant]
     Active Substance: ESOMEPRAZOLE SODIUM
     Dosage: UNK
     Route: 065
     Dates: start: 20201208, end: 20201214
  21. FUROSEMIDE. [Concomitant]
     Active Substance: FUROSEMIDE
     Dosage: UNK
     Route: 065
     Dates: start: 20201214, end: 20201214
  22. GLYCEOL [Concomitant]
     Active Substance: GLYCERIN
     Dosage: UNK
     Route: 065
     Dates: start: 20201130, end: 20201130
  23. OXYCODONE AND ACETAMINOPHEN [Concomitant]
     Active Substance: ACETAMINOPHEN\OXYCODONE HYDROCHLORIDE
     Indication: ANALGESIC THERAPY
     Dosage: UNK
     Route: 065
     Dates: start: 20201210, end: 20201210
  24. DEXAMETHASONE SODIUM PHOSPHATE. [Concomitant]
     Active Substance: DEXAMETHASONE SODIUM PHOSPHATE
     Indication: PROPHYLAXIS
     Dosage: UNK
     Route: 065
     Dates: start: 20201127, end: 20201127
  25. ALLOPURINOL. [Concomitant]
     Active Substance: ALLOPURINOL
     Indication: BLOOD URIC ACID DECREASED
     Dosage: UNK
     Route: 065
     Dates: start: 20201127, end: 20201201
  26. REDUCED GLUTATHIONE SODIUM [Concomitant]
     Active Substance: GLUTATHIONE
     Indication: PROPHYLAXIS
     Dosage: UNK
     Route: 065
     Dates: start: 20201127, end: 20201130
  27. FUROSEMIDE. [Concomitant]
     Active Substance: FUROSEMIDE
     Dosage: UNK
     Route: 065
     Dates: start: 20201129, end: 20201129
  28. LIDOCAINE HYDROCHLORIDE. [Concomitant]
     Active Substance: LIDOCAINE HYDROCHLORIDE
     Dosage: UNK
     Route: 065
     Dates: start: 20201130, end: 20201130
  29. CYTARABINE. [Concomitant]
     Active Substance: CYTARABINE
     Indication: PROPHYLAXIS
     Dosage: UNK
     Route: 065
     Dates: start: 20201127, end: 20201127
  30. LACTULOSE. [Concomitant]
     Active Substance: LACTULOSE
     Indication: CONSTIPATION
     Dosage: UNK
     Route: 065
     Dates: start: 20201128, end: 20201128
  31. RECOMBINANT HUMAN GRANULOCYTE COLONY STIMULAT [Concomitant]
     Dosage: UNK
     Route: 065
     Dates: start: 20201208, end: 20201208
  32. IBUPROFEN. [Concomitant]
     Active Substance: IBUPROFEN
     Indication: PYREXIA
     Dosage: UNK
     Route: 065
     Dates: start: 20201208, end: 20201208
  33. ESOMEPRAZOLE MAGNESIUM. [Concomitant]
     Active Substance: ESOMEPRAZOLE MAGNESIUM
     Dosage: UNK
     Route: 065
     Dates: start: 20201212, end: 20201212
  34. CYCLOPHOSPHAMIDE. [Concomitant]
     Active Substance: CYCLOPHOSPHAMIDE
     Dosage: UNK
     Route: 065
     Dates: start: 20210128, end: 20210130
  35. MESNA. [Suspect]
     Active Substance: MESNA
     Indication: NON-HODGKIN^S LYMPHOMA
     Dosage: 7.15 G, ONCE/SINGLE
     Route: 042
     Dates: start: 20201106
  36. ESOMEPRAZOLE SODIUM. [Concomitant]
     Active Substance: ESOMEPRAZOLE SODIUM
     Indication: PROPHYLAXIS
     Dosage: UNK
     Route: 065
     Dates: start: 20201127, end: 20201130
  37. FUROSEMIDE. [Concomitant]
     Active Substance: FUROSEMIDE
     Indication: DIURETIC THERAPY
     Dosage: UNK
     Route: 065
     Dates: start: 20201127, end: 20201130
  38. RECOMBINANT HUMAN GRANULOCYTE COLONY STIMULAT [Concomitant]
     Indication: PROPHYLAXIS
     Dosage: UNK
     Route: 065
     Dates: start: 20201202, end: 20201202
  39. COMPOUND AMINO ACID (18AA) [Concomitant]
     Active Substance: AMINO ACIDS, SOURCE UNSPECIFIED
     Indication: NUTRITIONAL SUPPLEMENTATION
     Dosage: UNK
     Route: 065
     Dates: start: 20201208, end: 20201211
  40. ALANYL GLUTAMINE [Concomitant]
     Active Substance: ALANYL GLUTAMINE
     Indication: NUTRITIONAL SUPPLEMENTATION
     Dosage: UNK
     Route: 065
     Dates: start: 20201208, end: 20201211
  41. DIPHENHYDRAMINE HCL [Concomitant]
     Active Substance: DIPHENHYDRAMINE HYDROCHLORIDE
     Indication: PROPHYLAXIS
     Dosage: UNK
     Route: 065
     Dates: start: 20201210, end: 20201210
  42. CYCLOPHOSPHAMIDE. [Concomitant]
     Active Substance: CYCLOPHOSPHAMIDE
     Indication: CHEMOTHERAPY
     Dosage: 7.15 G, Q24H
     Route: 065
     Dates: start: 20201128, end: 20201129
  43. TROPISETRON HYDROCHLORIDE [Concomitant]
     Active Substance: TROPISETRON HYDROCHLORIDE
     Indication: PROPHYLAXIS OF NAUSEA AND VOMITING
     Dosage: UNK
     Route: 065
     Dates: start: 20201127, end: 20201129
  44. SODIUM BICARBONATE. [Concomitant]
     Active Substance: SODIUM BICARBONATE
     Dosage: UNK
     Route: 065
     Dates: start: 20201127, end: 20201201
  45. GLYCEOL [Concomitant]
     Active Substance: GLYCERIN
     Indication: CONSTIPATION
     Dosage: UNK
     Route: 065
     Dates: start: 20201128, end: 20201128
  46. RECOMBINANT HUMAN GRANULOCYTE COLONY STIMULAT [Concomitant]
     Dosage: UNK
     Route: 065
     Dates: start: 20201204, end: 20201204
  47. RECOMBINANT HUMAN INTERLEUKIN?11 [Concomitant]
     Active Substance: OPRELVEKIN
     Indication: PROPHYLAXIS
     Dosage: UNK
     Route: 065
     Dates: start: 20201205, end: 20201205

REACTIONS (1)
  - Anaemia [Recovered/Resolved]

NARRATIVE: CASE EVENT DATE: 20201202
